FAERS Safety Report 8388967-0 (Version None)
Quarter: 2012Q2

REPORT INFORMATION
  Report Type: 
  Country: None (occurrence: None)
  Receive Date: 20120528
  Receipt Date: 20120522
  Transmission Date: 20120825
  Serious: Yes (Other)
  Sender: FDA-Public Use
  Company Number: US-AMGEN-USASP2012028653

PATIENT
  Age: 54 Year
  Sex: Female

DRUGS (3)
  1. LEVOXYL [Concomitant]
     Dosage: UNK MUG, UNK
  2. PROTONIX [Concomitant]
     Dosage: 1 MG, UNK
  3. ENBREL [Suspect]
     Indication: PSORIATIC ARTHROPATHY
     Dosage: 50 MG, QWK
     Dates: start: 20120201

REACTIONS (2)
  - ANXIETY [None]
  - DEPRESSION [None]
